FAERS Safety Report 9185684 (Version 2)
Quarter: 2013Q2

REPORT INFORMATION
  Report Type: Report from Study
  Country: BR (occurrence: BR)
  Receive Date: 20130325
  Receipt Date: 20130423
  Transmission Date: 20140414
  Serious: Yes (Life-Threatening, Hospitalization)
  Sender: FDA-Public Use
  Company Number: PHHY2013BR028408

PATIENT
  Age: 77 Year
  Sex: Female

DRUGS (13)
  1. DIOVAN HCT [Suspect]
     Indication: HYPERTENSION
     Dosage: 1 DF (320MG VALS/25MG HCTZ), WHEN NECESSARY
     Route: 048
  2. DIOVAN HCT [Suspect]
     Dosage: 1 DF (320MG VALS/25MG HCTZ), BID (SOMETIMES USED DURING THE DAY AND AT NIGHT)
  3. DIOVAN HCT [Suspect]
     Dosage: 2 DF (320 MG VALS/12.5 MG HCTZ), DAILY WHEN NECESSARY
     Route: 048
  4. MEDILET [Concomitant]
     Indication: CARDIAC DISORDER
     Dosage: 1 DF (5 MG), DAILY
     Route: 048
  5. SUSTRATE [Concomitant]
     Indication: DYSPNOEA
     Dosage: 3 DF (10 MG), DAILY
     Route: 048
  6. AAS [Concomitant]
     Indication: COAGULOPATHY
     Dosage: 1 DF (100 MG), DAILY
     Route: 048
  7. VIVACOR//ROSUVASTATIN CALCIUM [Concomitant]
     Indication: CARDIAC DISORDER
     Dosage: 1 DF (10 MG), DAILY
     Route: 048
  8. CLOPIDOGREL [Concomitant]
     Indication: CARDIAC DISORDER
     Dosage: 2 DF (75 MG), DAILY
     Route: 048
  9. GLIMEPIRIDE [Concomitant]
     Indication: DIABETES MELLITUS
     Dosage: 1 DF (2MG), DAILY
     Route: 048
  10. LEVAMLODIPINE [Concomitant]
     Indication: CARDIAC DISORDER
     Dosage: 1 DF (2.5 MG), DAILY
     Route: 048
  11. GALVUS [Concomitant]
     Indication: CARDIAC DISORDER
     Dosage: 2 DF (50 MG), DAILY
     Route: 048
  12. ROSULIP [Concomitant]
     Dosage: 1 DF (10 MG), AT NIGHT
     Route: 048
  13. VASTAREL [Concomitant]
     Indication: CARDIAC DISORDER
     Dosage: 2 DF (35 MG), DAILY
     Route: 048

REACTIONS (4)
  - Cerebrovascular accident [Recovering/Resolving]
  - Apparent death [Unknown]
  - Bone disorder [Recovering/Resolving]
  - Local swelling [Recovering/Resolving]
